FAERS Safety Report 25057862 (Version 2)
Quarter: 2025Q2

REPORT INFORMATION
  Report Type: Spontaneous
  Country: JP (occurrence: JP)
  Receive Date: 20250310
  Receipt Date: 20250506
  Transmission Date: 20250717
  Serious: Yes (Death)
  Sender: ROCHE
  Company Number: JP-CHUGAI-2025006828

PATIENT
  Age: 8 Decade
  Sex: Male
  Weight: 49.4 kg

DRUGS (4)
  1. ACTEMRA [Suspect]
     Active Substance: TOCILIZUMAB
     Indication: Rheumatoid arthritis
     Dosage: UNK
     Route: 042
     Dates: start: 20240925, end: 20250122
  2. PREDNISOLONE [Suspect]
     Active Substance: PREDNISOLONE
     Indication: Product used for unknown indication
     Route: 065
     Dates: start: 20221220, end: 20250122
  3. AZULFIDINE EN-TABS [Concomitant]
     Active Substance: SULFASALAZINE
     Dates: start: 20221220, end: 20250122
  4. IGURATIMOD [Concomitant]
     Active Substance: IGURATIMOD
     Dates: start: 20230104, end: 20250122

REACTIONS (1)
  - Organising pneumonia [Fatal]

NARRATIVE: CASE EVENT DATE: 20250131
